FAERS Safety Report 7799809-6 (Version None)
Quarter: 2011Q4

REPORT INFORMATION
  Report Type: 
  Country: None (occurrence: None)
  Receive Date: 20111004
  Receipt Date: 20110921
  Transmission Date: 20120403
  Serious: Yes (Other)
  Sender: FDA-Public Use
  Company Number: AUR-APL-2011-05094

PATIENT
  Age: 66 Year
  Sex: Female

DRUGS (1)
  1. ZOLPIDEM [Suspect]
     Indication: SLEEP DISORDER
     Dosage: 10 MG (10 MG,1 IN 1 D),ORAL
     Route: 048
     Dates: start: 20090601

REACTIONS (5)
  - ANXIETY [None]
  - RESTLESSNESS [None]
  - INSOMNIA [None]
  - PRODUCT SUBSTITUTION ISSUE [None]
  - GAIT DISTURBANCE [None]
